FAERS Safety Report 18362205 (Version 1)
Quarter: 2020Q4

REPORT INFORMATION
  Report Type: Spontaneous
  Country: GB (occurrence: GB)
  Receive Date: 20201008
  Receipt Date: 20201008
  Transmission Date: 20210114
  Serious: Yes (Other)
  Sender: FDA-Public Use
  Company Number: GB-MYLANLABS-2020M1084843

PATIENT
  Age: 34 Year
  Sex: Female

DRUGS (1)
  1. CANDESARTAN. [Suspect]
     Active Substance: CANDESARTAN
     Indication: MIGRAINE
     Dosage: 4 MILLIGRAM, QD
     Route: 048
     Dates: start: 202008, end: 202009

REACTIONS (2)
  - Hypotension [Recovered/Resolved]
  - Tinnitus [Recovered/Resolved]
